FAERS Safety Report 13761213 (Version 2)
Quarter: 2017Q3

REPORT INFORMATION
  Report Type: Report from Study
  Country: US (occurrence: US)
  Receive Date: 20170717
  Receipt Date: 20170816
  Transmission Date: 20171127
  Serious: Yes (Death)
  Sender: FDA-Public Use
  Company Number: US-ACTELION-A-US2017-156058

PATIENT
  Age: 52 Year
  Sex: Female

DRUGS (11)
  1. LASIX [Concomitant]
     Active Substance: FUROSEMIDE
  2. OXYGEN. [Concomitant]
     Active Substance: OXYGEN
  3. PEPCID [Concomitant]
     Active Substance: FAMOTIDINE
  4. PREDNISONE. [Concomitant]
     Active Substance: PREDNISONE
     Dosage: 10 MG, QD
     Dates: start: 2011
  5. SPIRONOLACTONE. [Concomitant]
     Active Substance: SPIRONOLACTONE
  6. IRON [Concomitant]
     Active Substance: IRON
  7. SYMBICORT [Concomitant]
     Active Substance: BUDESONIDE\FORMOTEROL FUMARATE DIHYDRATE
  8. DIGOXIN. [Concomitant]
     Active Substance: DIGOXIN
  9. ADCIRCA [Concomitant]
     Active Substance: TADALAFIL
  10. OPSUMIT [Suspect]
     Active Substance: MACITENTAN
     Indication: PULMONARY HYPERTENSION
     Dosage: 10 MG, QD
     Route: 048
     Dates: start: 20170602, end: 201706
  11. METFORMIN [Concomitant]
     Active Substance: METFORMIN HYDROCHLORIDE

REACTIONS (5)
  - Condition aggravated [Unknown]
  - Rash [Unknown]
  - Peripheral swelling [Unknown]
  - Lung disorder [Fatal]
  - Asthenia [Unknown]

NARRATIVE: CASE EVENT DATE: 20170606
